FAERS Safety Report 6253043-X (Version None)
Quarter: 2009Q3

REPORT INFORMATION
  Report Type: 
  Country: None (occurrence: None)
  Receive Date: 20090701
  Receipt Date: 20090618
  Transmission Date: 20100115
  Serious: Yes (Other)
  Sender: FDA-Public Use
  Company Number: US-PFIZER INC-2009230171

PATIENT
  Sex: Female
  Weight: 48 kg

DRUGS (7)
  1. PROVERA [Suspect]
     Indication: MENOPAUSE
     Dosage: UNK
     Dates: start: 19881001, end: 19951001
  2. MEDROXYPROGESTERONE AND MEDROXYPROGESTERONE ACETATE [Suspect]
     Indication: MENOPAUSE
     Dosage: UNK
     Dates: start: 19950101
  3. OGEN [Suspect]
     Indication: MENOPAUSE
     Dosage: UNK
     Dates: start: 19881001, end: 19941201
  4. PREMARIN [Suspect]
     Indication: MENOPAUSE
     Dosage: UNK
     Dates: start: 19941201, end: 19951001
  5. PREMPRO [Suspect]
     Indication: MENOPAUSE
     Dosage: UNK
     Dates: start: 19951001, end: 19961101
  6. CEPHALEXIN [Concomitant]
     Indication: BACTERIAL INFECTION
     Dosage: UNK
     Dates: start: 19950101, end: 20010101
  7. MECLIZINE [Concomitant]
     Indication: VOMITING
     Dosage: UNK
     Dates: start: 19950101, end: 20010101

REACTIONS (1)
  - BREAST CANCER FEMALE [None]
